FAERS Safety Report 16513892 (Version 1)
Quarter: 2019Q3

REPORT INFORMATION
  Report Type: Spontaneous
  Country: US (occurrence: US)
  Receive Date: 20190701
  Receipt Date: 20190701
  Transmission Date: 20191004
  Serious: No
  Sender: FDA-Public Use
  Company Number: US-ROCHE-2246973

PATIENT
  Sex: Female
  Weight: 72.57 kg

DRUGS (12)
  1. SEROQUEL [Concomitant]
     Active Substance: QUETIAPINE FUMARATE
  2. KLONOPIN [Suspect]
     Active Substance: CLONAZEPAM
     Indication: PRODUCT USED FOR UNKNOWN INDICATION
     Route: 065
  3. VRAYLAR [Suspect]
     Active Substance: CARIPRAZINE
     Indication: BIPOLAR DISORDER
     Route: 048
     Dates: start: 2017
  4. GABAPENTIN. [Concomitant]
     Active Substance: GABAPENTIN
     Dosage: 800 MG
     Route: 065
  5. SAPHRIS [Concomitant]
     Active Substance: ASENAPINE MALEATE
  6. HALDOL [Concomitant]
     Active Substance: HALOPERIDOL
  7. INVEGA [Concomitant]
     Active Substance: PALIPERIDONE
  8. RISPERDAL [Concomitant]
     Active Substance: RISPERIDONE
  9. CLOZARIL [Concomitant]
     Active Substance: CLOZAPINE
  10. ZIPRASIDONE HCL [Suspect]
     Active Substance: ZIPRASIDONE HYDROCHLORIDE
     Indication: HYPERTENSION
     Dosage: 2 CAPSULES
     Route: 048
     Dates: start: 2015
  11. COREG [Concomitant]
     Active Substance: CARVEDILOL
     Route: 065
  12. THORAZINE [Concomitant]
     Active Substance: CHLORPROMAZINE

REACTIONS (3)
  - Drug ineffective [Unknown]
  - Hallucination, visual [Unknown]
  - Hallucination, auditory [Unknown]
